FAERS Safety Report 24320570 (Version 1)
Quarter: 2024Q3

REPORT INFORMATION
  Report Type: Report from Study
  Country: US (occurrence: US)
  Receive Date: 20240915
  Receipt Date: 20240915
  Transmission Date: 20241017
  Serious: Yes (Other)
  Sender: ABBVIE
  Company Number: US-ABBVIE-5920568

PATIENT
  Sex: Female

DRUGS (1)
  1. RINVOQ [Suspect]
     Active Substance: UPADACITINIB
     Indication: Crohn^s disease
     Route: 058
     Dates: start: 20240410, end: 20240829

REACTIONS (2)
  - Colitis [Not Recovered/Not Resolved]
  - Procedural intestinal perforation [Unknown]

NARRATIVE: CASE EVENT DATE: 20240101
